FAERS Safety Report 7745730-9 (Version None)
Quarter: 2011Q3

REPORT INFORMATION
  Report Type: 
  Country: None (occurrence: None)
  Receive Date: 20110913
  Receipt Date: 20110822
  Transmission Date: 20111222
  Serious: No
  Sender: FDA-Public Use
  Company Number: US-BAYER-2011-080898

PATIENT
  Sex: Female

DRUGS (4)
  1. ALEVE (CAPLET) [Suspect]
     Indication: TRIGEMINAL NEURALGIA
     Route: 048
  2. MOTRIN [Concomitant]
  3. ARCOXIA [Concomitant]
  4. ACETAMINOPHEN [Concomitant]

REACTIONS (1)
  - PAIN [None]
